FAERS Safety Report 6961015-2 (Version None)
Quarter: 2010Q3

REPORT INFORMATION
  Report Type: 
  Country: None (occurrence: None)
  Receive Date: 20100901
  Receipt Date: 20100826
  Transmission Date: 20110219
  Serious: Yes (Other)
  Sender: FDA-Public Use
  Company Number: US-BAYER-201019490BCC

PATIENT
  Age: 78 Year
  Sex: Female
  Weight: 72 kg

DRUGS (8)
  1. ASPIRIN [Suspect]
     Indication: HEADACHE
     Dosage: TOTAL DAILY DOSE: 1 DF
     Route: 048
     Dates: start: 20100825
  2. BENICAR [Concomitant]
     Route: 065
  3. NATURE MADE FISH OIL [Concomitant]
     Route: 065
  4. NATURE MADE COQ10 [Concomitant]
     Route: 065
  5. NATURE MADE CHROMIUM [Concomitant]
     Route: 065
  6. NATURE MADE CALCIUM WITH MAGNESIUM [Concomitant]
     Route: 065
  7. NATURE MADE ZINC [Concomitant]
     Route: 065
  8. NATURE MADE VITAMIN D [Concomitant]
     Route: 065

REACTIONS (6)
  - DYSPHAGIA [None]
  - DYSPNOEA [None]
  - FOREIGN BODY [None]
  - OROPHARYNGEAL PAIN [None]
  - SALIVARY HYPERSECRETION [None]
  - THROAT IRRITATION [None]
